FAERS Safety Report 4769809-9 (Version None)
Quarter: 2005Q3

REPORT INFORMATION
  Report Type: 
  Country: None (occurrence: None)
  Receive Date: 20050912
  Receipt Date: 20050620
  Transmission Date: 20060218
  Serious: Yes (Hospitalization)
  Sender: FDA-Public Use
  Company Number: 2005-01289

PATIENT
  Age: 39 Year
  Sex: Male
  Weight: 72.6 kg

DRUGS (2)
  1. VELCADE [Suspect]
     Indication: NON-HODGKIN'S LYMPHOMA
     Dosage: 2.60 MG, INTRAVENOUS
     Route: 042
     Dates: start: 20050215, end: 20050405
  2. DOXIL [Concomitant]

REACTIONS (1)
  - HERPES ZOSTER [None]
